FAERS Safety Report 8860752 (Version 1)
Quarter: 2012Q4

REPORT INFORMATION
  Report Type: Report from Study
  Country: GB (occurrence: GB)
  Receive Date: 20121026
  Receipt Date: 20121026
  Transmission Date: 20130627
  Serious: Yes (Other)
  Sender: FDA-Public Use
  Company Number: GB-009507513-1210GBR010635

PATIENT
  Age: 53 Year
  Sex: Male
  Weight: 85 kg

DRUGS (8)
  1. RIBAVIRIN [Suspect]
     Indication: HEPATITIS C
     Dosage: 300 mg, bid
     Route: 048
     Dates: start: 20110830
  2. PEGINTERFERON ALFA-2A [Suspect]
     Indication: HEPATITIS C
     Dosage: 180 Microgram, qd
     Route: 058
     Dates: start: 20110830
  3. INCIVO [Suspect]
     Indication: HEPATITIS C
     Dosage: 750 mg, qd
     Route: 048
     Dates: start: 20110830, end: 20111118
  4. FLUOXETINE [Concomitant]
     Dosage: 20 mg, UNK
  5. PROPRANOLOL HYDROCHLORIDE [Concomitant]
     Dosage: 10 mg, bid
  6. COD LIVER OIL [Concomitant]
     Dosage: UNK UNK, qd
     Route: 048
  7. ZINC (UNSPECIFIED) [Concomitant]
     Dosage: 1 DF, qd
     Route: 048
  8. CYCLIZINE [Concomitant]
     Dosage: 50 mg, tid
     Route: 048
     Dates: start: 20110914

REACTIONS (2)
  - Drug eruption [Recovered/Resolved]
  - Face oedema [Recovered/Resolved]
